FAERS Safety Report 10051778 (Version 2)
Quarter: 2014Q2

REPORT INFORMATION
  Report Type: Spontaneous
  Country: US (occurrence: US)
  Receive Date: 20140402
  Receipt Date: 20140429
  Transmission Date: 20141212
  Serious: Yes (Hospitalization)
  Sender: FDA-Public Use
  Company Number: US-AMGEN-USASP2014022421

PATIENT
  Age: 64 Year
  Sex: Female

DRUGS (2)
  1. ENBREL [Suspect]
     Indication: ARTHRITIS
     Dosage: UNK
     Route: 065
  2. ENBREL [Suspect]
     Dosage: UNK
     Route: 065

REACTIONS (1)
  - Lung neoplasm malignant [Unknown]
